FAERS Safety Report 8590448-6 (Version None)
Quarter: 2012Q3

REPORT INFORMATION
  Report Type: 
  Country: None (occurrence: None)
  Receive Date: 20120813
  Receipt Date: 20120806
  Transmission Date: 20120928
  Serious: Yes (Hospitalization)
  Sender: FDA-Public Use
  Company Number: US-UCBSA-063337

PATIENT
  Age: 79 Year
  Sex: Female
  Weight: 87 kg

DRUGS (6)
  1. LEVETIRACETAM [Suspect]
  2. VIMPAT [Suspect]
     Dosage: 100 MG
     Route: 048
     Dates: end: 20120101
  3. LEVETIRACETAM [Suspect]
     Dosage: 500 MG TABLET, 1/2 TABLET FOR 2 WEEKS
     Route: 048
     Dates: start: 20120101, end: 20120101
  4. LEVETIRACETAM [Suspect]
     Dates: start: 20120101, end: 20120601
  5. VIMPAT [Suspect]
     Indication: CONVULSION
     Route: 048
     Dates: start: 20120101, end: 20120601
  6. LEVETIRACETAM [Suspect]
     Dosage: 500 MG TABLET, 1/2 EACH NIGHT FOR 2 WEEKS
     Route: 048
     Dates: start: 20120101, end: 20120101

REACTIONS (5)
  - HALLUCINATION, AUDITORY [None]
  - SOMNOLENCE [None]
  - CONVULSION [None]
  - FATIGUE [None]
  - RASH [None]
